FAERS Safety Report 11090084 (Version 1)
Quarter: 2015Q2

REPORT INFORMATION
  Report Type: Spontaneous
  Country: FR (occurrence: FR)
  Receive Date: 20150505
  Receipt Date: 20150505
  Transmission Date: 20150821
  Serious: Yes (Hospitalization)
  Sender: FDA-Public Use
  Company Number: FR-PFIZER INC-2015148565

PATIENT
  Age: 88 Year
  Sex: Female

DRUGS (9)
  1. SEROPLEX [Concomitant]
     Active Substance: ESCITALOPRAM OXALATE
     Dosage: 10 MG, DAILY
     Route: 048
     Dates: start: 201304, end: 201404
  2. CORTANCYL [Concomitant]
     Active Substance: PREDNISONE
     Dosage: 20 MG, 1X/DAY
     Route: 048
     Dates: start: 20141129, end: 20141204
  3. SEROPLEX [Concomitant]
     Active Substance: ESCITALOPRAM OXALATE
     Dosage: 5 MG, DAILY
     Route: 048
     Dates: start: 201404, end: 20141204
  4. DISCOTRINE [Concomitant]
     Active Substance: NITROGLYCERIN
     Dosage: 1 DF (5 MG/ 24 HOURS), 1X/DAY
     Route: 062
  5. IBUPROFEN. [Concomitant]
     Active Substance: IBUPROFEN
     Dosage: 400 MG, 1X/DAY
     Route: 048
     Dates: start: 20141201, end: 20141204
  6. SOLU-MEDROL [Suspect]
     Active Substance: METHYLPREDNISOLONE SODIUM SUCCINATE
     Dosage: 1 DF (20 MG/2 ML), 1X/DAY
     Route: 030
     Dates: start: 20141125, end: 20141128
  7. DAFALGAN [Suspect]
     Active Substance: ACETAMINOPHEN
     Indication: BACK PAIN
     Dosage: UNK
     Route: 048
     Dates: start: 20141124, end: 20141204
  8. CETIRIZINE DIHYDROCHLORIDE [Concomitant]
     Active Substance: CETIRIZINE HYDROCHLORIDE
     Dosage: UNK
     Route: 048
     Dates: end: 20141204
  9. KARDEGIC [Concomitant]
     Active Substance: ASPIRIN LYSINE
     Dosage: 75 MG, 1X/DAY
     Route: 048

REACTIONS (2)
  - Cholestasis [Recovered/Resolved]
  - Cell death [Recovered/Resolved]

NARRATIVE: CASE EVENT DATE: 20141204
